FAERS Safety Report 13335865 (Version 1)
Quarter: 2017Q1

REPORT INFORMATION
  Report Type: Spontaneous
  Country: ES (occurrence: ES)
  Receive Date: 20170314
  Receipt Date: 20170314
  Transmission Date: 20170428
  Serious: Yes (Other)
  Sender: FDA-Public Use
  Company Number: ES-PFIZER INC-2017107709

PATIENT
  Age: 78 Year
  Sex: Female

DRUGS (5)
  1. QUETIAPINE. [Concomitant]
     Active Substance: QUETIAPINE
     Dosage: 125 MG, 2X/DAY
     Route: 048
     Dates: start: 20140616
  2. DEPRAX /00447702/ [Concomitant]
     Active Substance: TRAZODONE HYDROCHLORIDE
     Dosage: 200 MG, 1X/DAY
     Route: 048
     Dates: start: 20130109
  3. RIVASTIGMINE. [Concomitant]
     Active Substance: RIVASTIGMINE
     Dosage: 9.5 MG, 1X/DAY
     Route: 062
     Dates: start: 20120609
  4. LYRICA [Suspect]
     Active Substance: PREGABALIN
     Indication: DEMENTIA ALZHEIMER^S TYPE
     Dosage: 50 MG, 1X/DAY
     Route: 048
     Dates: start: 201702, end: 201702
  5. LYRICA [Suspect]
     Active Substance: PREGABALIN
     Dosage: 25 MG, 1X/DAY
     Route: 048
     Dates: start: 20170214, end: 201702

REACTIONS (5)
  - Musculoskeletal stiffness [Recovered/Resolved]
  - Middle insomnia [Recovered/Resolved]
  - Product use issue [Recovered/Resolved]
  - Dyskinesia [Recovered/Resolved]
  - Nightmare [Recovered/Resolved]

NARRATIVE: CASE EVENT DATE: 201702
